FAERS Safety Report 17852556 (Version 1)
Quarter: 2020Q2

REPORT INFORMATION
  Report Type: Spontaneous
  Country: US (occurrence: US)
  Receive Date: 20200602
  Receipt Date: 20200602
  Transmission Date: 20200714
  Serious: Yes (Life-Threatening)
  Sender: FDA-Public Use
  Company Number: US-009507513-2006USA000209

PATIENT
  Sex: Female

DRUGS (3)
  1. LISINOPRIL. [Suspect]
     Active Substance: LISINOPRIL
     Indication: HYPERTENSION
     Dosage: 1 TABLET ONCE DAILY
     Route: 048
     Dates: start: 2020
  2. ZOLOFT [Concomitant]
     Active Substance: SERTRALINE HYDROCHLORIDE
  3. PRINIVIL [Suspect]
     Active Substance: LISINOPRIL
     Dosage: 1 TABLET ONCE DAILY, FOR MULTIPLE YEARS
     Route: 048

REACTIONS (3)
  - Product dose omission [Unknown]
  - Hypertension [Not Recovered/Not Resolved]
  - Product availability issue [Unknown]

NARRATIVE: CASE EVENT DATE: 2020
